FAERS Safety Report 6492271-5 (Version None)
Quarter: 2009Q4

REPORT INFORMATION
  Report Type: 
  Country: None (occurrence: None)
  Receive Date: 20091214
  Receipt Date: 20091202
  Transmission Date: 20100525
  Serious: Yes (Hospitalization)
  Sender: FDA-Public Use
  Company Number: PHHY2009GB48645

PATIENT
  Sex: Female

DRUGS (6)
  1. CLOZARIL [Suspect]
     Indication: SCHIZOPHRENIA
     Dosage: 400 MG/DAY
     Route: 048
     Dates: start: 20031112
  2. VENLAFAXINE [Suspect]
     Indication: DEPRESSION
     Dosage: 30 MG, UNK
     Route: 048
     Dates: start: 20080101, end: 20091001
  3. PROCYCLIDINE HYDROCHLORIDE 2MG TAB [Concomitant]
  4. ZUCLOPENTHIXOL DECANOATE [Concomitant]
  5. SIMVASTATIN [Concomitant]
  6. SENNA [Concomitant]

REACTIONS (5)
  - ANTIPSYCHOTIC DRUG LEVEL INCREASED [None]
  - CONSTIPATION [None]
  - DYSURIA [None]
  - FATIGUE [None]
  - ORTHOSTATIC HYPOTENSION [None]
